FAERS Safety Report 18601871 (Version 1)
Quarter: 2020Q4

REPORT INFORMATION
  Report Type: Spontaneous
  Country: FR (occurrence: FR)
  Receive Date: 20201210
  Receipt Date: 20201210
  Transmission Date: 20210114
  Serious: Yes (Hospitalization, Other)
  Sender: FDA-Public Use
  Company Number: FR-MYLANLABS-2020M1100733

PATIENT
  Age: 49 Year
  Sex: Male
  Weight: 88 kg

DRUGS (5)
  1. LERCANIDIPINE [Suspect]
     Active Substance: LERCANIDIPINE
     Indication: PRODUCT USED FOR UNKNOWN INDICATION
     Dosage: POSOLOGY NOT KNOWN
     Route: 048
     Dates: start: 20200928, end: 20200928
  2. PARACETAMOL [Suspect]
     Active Substance: ACETAMINOPHEN
     Indication: PRODUCT USED FOR UNKNOWN INDICATION
     Dosage: 20 GRAM, TOTAL
     Route: 048
     Dates: start: 20200928, end: 20200928
  3. TRAMADOL. [Suspect]
     Active Substance: TRAMADOL
     Indication: PRODUCT USED FOR UNKNOWN INDICATION
     Dosage: POSOLOGY NOT KNOWN
     Route: 048
     Dates: start: 20200928, end: 20200928
  4. BISOPROLOL [Suspect]
     Active Substance: BISOPROLOL
     Indication: PRODUCT USED FOR UNKNOWN INDICATION
     Dosage: POSOLOGY NOT KNOWN
     Route: 048
     Dates: start: 20200928, end: 20200928
  5. SERESTA [Suspect]
     Active Substance: OXAZEPAM
     Indication: PRODUCT USED FOR UNKNOWN INDICATION
     Dosage: POSOLOGY NOT KNOWN
     Route: 048
     Dates: start: 20200928, end: 20200928

REACTIONS (2)
  - Poisoning deliberate [Unknown]
  - Acute hepatic failure [Recovering/Resolving]

NARRATIVE: CASE EVENT DATE: 20200929
